FAERS Safety Report 4405669-3 (Version None)
Quarter: 2004Q3

REPORT INFORMATION
  Report Type: 
  Country: None (occurrence: None)
  Receive Date: 20040723
  Receipt Date: 20031110
  Transmission Date: 20050211
  Serious: No
  Sender: FDA-Public Use
  Company Number: US-GLAXOSMITHKLINE-A0439010A

PATIENT
  Age: 44 Year
  Sex: Male

DRUGS (3)
  1. AVANDIA [Suspect]
     Dosage: 8MG PER DAY
     Route: 048
  2. HUMULIN 70/30 [Concomitant]
  3. MULTIVITAMIN [Concomitant]

REACTIONS (4)
  - DEPRESSION [None]
  - HYPOGLYCAEMIA [None]
  - NERVOUSNESS [None]
  - TREMOR [None]
